FAERS Safety Report 10085414 (Version 2)
Quarter: 2014Q2

REPORT INFORMATION
  Report Type: Report from Study
  Country: CA (occurrence: CA)
  Receive Date: 20140418
  Receipt Date: 20140418
  Transmission Date: 20141212
  Serious: Yes (Death)
  Sender: FDA-Public Use
  Company Number: CA-ROCHE-1351342

PATIENT
  Age: 62 Year
  Sex: Male

DRUGS (7)
  1. AVASTIN [Suspect]
     Indication: BRAIN NEOPLASM MALIGNANT
     Route: 042
     Dates: start: 20131112, end: 20140218
  2. AVASTIN [Suspect]
     Indication: GLIOBLASTOMA MULTIFORME
     Route: 042
     Dates: start: 20140128, end: 20140218
  3. CRESTOR [Concomitant]
  4. CIPRALEX [Concomitant]
  5. ZOPICLONE [Concomitant]
     Route: 065
  6. VITAMIN B12 [Concomitant]
  7. ANDROGEL [Concomitant]

REACTIONS (4)
  - Malignant neoplasm progression [Fatal]
  - Drug ineffective [Fatal]
  - Muscle twitching [Unknown]
  - Dizziness [Unknown]
